FAERS Safety Report 19570403 (Version 1)
Quarter: 2021Q3

REPORT INFORMATION
  Report Type: Spontaneous
  Country: CN (occurrence: CN)
  Receive Date: 20210716
  Receipt Date: 20210716
  Transmission Date: 20211014
  Serious: Yes (Hospitalization, Other)
  Sender: FDA-Public Use
  Company Number: CN-PFIZER INC-2021831659

PATIENT
  Age: 51 Year
  Sex: Female
  Weight: 49 kg

DRUGS (3)
  1. PHARMORUBICIN [Suspect]
     Active Substance: EPIRUBICIN
     Indication: CHEMOTHERAPY
     Dosage: 100 MG, 1X/DAY
     Route: 041
     Dates: start: 20210622, end: 20210622
  2. DUO PA FEI [Suspect]
     Active Substance: DOCETAXEL
     Indication: CHEMOTHERAPY
     Dosage: 110 MG, 1X/DAY
     Route: 041
     Dates: start: 20210623, end: 20210623
  3. ENDOXAN?BAXTER [Suspect]
     Active Substance: CYCLOPHOSPHAMIDE
     Indication: CHEMOTHERAPY
     Dosage: 850 MG, 1X/DAY
     Route: 041
     Dates: start: 20210622, end: 20210622

REACTIONS (1)
  - Agranulocytosis [Recovering/Resolving]

NARRATIVE: CASE EVENT DATE: 20210630
